FAERS Safety Report 6089541-1 (Version None)
Quarter: 2009Q1

REPORT INFORMATION
  Report Type: 
  Country: None (occurrence: None)
  Receive Date: 20090224
  Receipt Date: 20090213
  Transmission Date: 20090719
  Serious: Yes (Hospitalization, Other)
  Sender: FDA-Public Use
  Company Number: ES-JNJFOC-20090103879

PATIENT
  Age: 61 Year
  Sex: Female

DRUGS (3)
  1. REMICADE [Suspect]
     Indication: RHEUMATOID ARTHRITIS
     Route: 042
  2. REMICADE [Suspect]
     Indication: BEHCET'S SYNDROME
     Dosage: 4 INFUSIONS ON UNSPECIFIED DATES
     Route: 042
  3. ALL OTHER THERAPEUTIC DRUGS [Concomitant]
     Indication: OSTEOPOROSIS

REACTIONS (1)
  - THYROIDITIS [None]
